FAERS Safety Report 25283809 (Version 1)
Quarter: 2025Q2

REPORT INFORMATION
  Report Type: Spontaneous
  Country: US (occurrence: None)
  Receive Date: 20250508
  Receipt Date: 20250508
  Transmission Date: 20250717
  Serious: Yes (Life-Threatening, Hospitalization, Disabling, Other)
  Sender: FDA-CTU
  Company Number: None

PATIENT
  Age: 36 Year
  Sex: Female
  Weight: 76.5 kg

DRUGS (2)
  1. VIVITROL [Suspect]
     Active Substance: NALTREXONE
  2. GABAPENTIN [Concomitant]
     Active Substance: GABAPENTIN

REACTIONS (8)
  - Injection site pain [None]
  - Injection site cyst [None]
  - Nerve injury [None]
  - Thrombosis [None]
  - Pain [None]
  - Mobility decreased [None]
  - Insomnia [None]
  - Injection site abscess [None]

NARRATIVE: CASE EVENT DATE: 20250411
